FAERS Safety Report 10046685 (Version 1)
Quarter: 2014Q1

REPORT INFORMATION
  Report Type: Spontaneous
  Country: US (occurrence: None)
  Receive Date: 20140326
  Receipt Date: 20140326
  Transmission Date: 20141002
  Serious: Yes (Hospitalization)
  Sender: FDA-Public Use
  Company Number: UTC-045993

PATIENT
  Age: 59 Year
  Sex: Male

DRUGS (3)
  1. REMODULIN (5 MILLIGRAM/MILLILITERS, INJECTION FOR INFUSION) (TREPROSTINIL SODIUM) [Suspect]
     Dosage: 0.03 UG/KG) 1 IN 1 D
     Route: 058
     Dates: start: 20131217
  2. TRACLEER (BOSENTAN) (UNKNOWN) [Concomitant]
  3. ADCIRCA (TADALAFIL) (UNKNOWN) [Concomitant]

REACTIONS (2)
  - Gastrointestinal disorder [None]
  - Drug dose omission [None]
